FAERS Safety Report 5266205-5 (Version None)
Quarter: 2007Q1

REPORT INFORMATION
  Report Type: 
  Country: None (occurrence: None)
  Receive Date: 20070315
  Receipt Date: 20070312
  Transmission Date: 20070707
  Serious: Yes (Other)
  Sender: FDA-Public Use
  Company Number: US-GLAXOSMITHKLINE-A0642823A

PATIENT
  Sex: Female

DRUGS (4)
  1. ESKALITH [Suspect]
     Indication: BIPOLAR II DISORDER
     Dosage: 450MG UNKNOWN
     Route: 048
  2. WELLBUTRIN [Suspect]
     Indication: DEPRESSION
     Dosage: 400MG VARIABLE DOSE
     Route: 048
  3. PROZAC [Concomitant]
  4. KEPPRA [Concomitant]

REACTIONS (7)
  - AGITATION [None]
  - ANXIETY [None]
  - CHILLS [None]
  - CONFUSIONAL STATE [None]
  - HYPERHIDROSIS [None]
  - MYALGIA [None]
  - SEROTONIN SYNDROME [None]
